FAERS Safety Report 16221857 (Version 1)
Quarter: 2019Q2

REPORT INFORMATION
  Report Type: Spontaneous
  Country: US (occurrence: US)
  Receive Date: 20190315
  Receipt Date: 20190315
  Transmission Date: 20190711
  Serious: Yes (Hospitalization)
  Sender: FDA-Public Use
  Company Number: None

PATIENT
  Age: 17 Year
  Sex: Female
  Weight: 72.5 kg

DRUGS (1)
  1. ONCASPAR [Suspect]
     Active Substance: PEGASPARGASE
     Dates: end: 20190218

REACTIONS (5)
  - Neurological decompensation [None]
  - Somnolence [None]
  - Brain midline shift [None]
  - Aggression [None]
  - Superior sagittal sinus thrombosis [None]

NARRATIVE: CASE EVENT DATE: 20190312
